FAERS Safety Report 14254711 (Version 2)
Quarter: 2017Q4

REPORT INFORMATION
  Report Type: Spontaneous
  Country: US (occurrence: US)
  Receive Date: 20171206
  Receipt Date: 20171210
  Transmission Date: 20180321
  Serious: Yes (Hospitalization, Other)
  Sender: FDA-Public Use
  Company Number: US-AMGEN-USASP2017180126

PATIENT
  Age: 90 Year
  Sex: Female

DRUGS (2)
  1. PROCRIT [Suspect]
     Active Substance: ERYTHROPOIETIN
     Dosage: 20000 UNIT, Q2WK
     Route: 058
     Dates: start: 201709, end: 2017
  2. PROCRIT [Suspect]
     Active Substance: ERYTHROPOIETIN
     Indication: CHRONIC KIDNEY DISEASE
     Dosage: 10000 UNIT, Q2WK
     Route: 058
     Dates: start: 201709, end: 201709

REACTIONS (4)
  - Haemoglobin decreased [Recovered/Resolved]
  - Mobility decreased [Unknown]
  - Unevaluable event [Not Recovered/Not Resolved]
  - Cardiac failure congestive [Not Recovered/Not Resolved]

NARRATIVE: CASE EVENT DATE: 201709
